FAERS Safety Report 25048178 (Version 1)
Quarter: 2025Q1

REPORT INFORMATION
  Report Type: Spontaneous
  Country: NL (occurrence: NL)
  Receive Date: 20250306
  Receipt Date: 20250306
  Transmission Date: 20250408
  Serious: Yes (Death, Other)
  Sender: AMGEN
  Company Number: NL-AMGEN-NLDSP2025040327

PATIENT

DRUGS (1)
  1. BEVACIZUMAB [Suspect]
     Active Substance: BEVACIZUMAB
     Indication: Schwannoma
     Route: 065

REACTIONS (4)
  - Death [Fatal]
  - Schwannoma [Unknown]
  - Acoustic neuroma [Unknown]
  - Off label use [Unknown]
